FAERS Safety Report 9330186 (Version 2)
Quarter: 2013Q3

REPORT INFORMATION
  Report Type: Spontaneous
  Country: US (occurrence: US)
  Receive Date: 20130604
  Receipt Date: 20130807
  Transmission Date: 20140515
  Serious: Yes (Other)
  Sender: FDA-Public Use
  Company Number: US-UCBSA-087105

PATIENT
  Sex: Male

DRUGS (1)
  1. KEPPRA [Suspect]
     Indication: CONVULSION
     Dosage: STRENGTH: 500 MG
     Dates: start: 201301

REACTIONS (3)
  - Heart injury [Unknown]
  - Cardiac failure congestive [Unknown]
  - Diabetes mellitus [Unknown]
